FAERS Safety Report 23335134 (Version 3)
Quarter: 2025Q2

REPORT INFORMATION
  Report Type: Spontaneous
  Country: US (occurrence: US)
  Receive Date: 20231225
  Receipt Date: 20250402
  Transmission Date: 20250716
  Serious: No
  Sender: SANOFI AVENTIS
  Company Number: US-SA-SAC20231218000562

PATIENT
  Age: 3 Year
  Sex: Male
  Weight: 17.23 kg

DRUGS (1)
  1. DUPIXENT [Suspect]
     Active Substance: DUPILUMAB
     Indication: Dermatitis atopic
     Dosage: 300 MG, Q4W
     Route: 058
     Dates: start: 202306, end: 2024

REACTIONS (7)
  - Abnormal behaviour [Unknown]
  - Skin discolouration [Unknown]
  - Dry skin [Unknown]
  - Pruritus [Recovering/Resolving]
  - Therapeutic response shortened [Unknown]
  - Rash [Unknown]
  - Inappropriate schedule of product administration [Unknown]

NARRATIVE: CASE EVENT DATE: 20230101
